FAERS Safety Report 5268512-9 (Version None)
Quarter: 2007Q1

REPORT INFORMATION
  Report Type: 
  Country: None (occurrence: None)
  Receive Date: 20070319
  Receipt Date: 20070309
  Transmission Date: 20070707
  Serious: Yes (Hospitalization)
  Sender: FDA-Public Use
  Company Number: 2007UW04695

PATIENT

DRUGS (4)
  1. SEROQUEL [Suspect]
     Indication: BIPOLAR DISORDER
     Route: 048
  2. SEROQUEL [Suspect]
     Indication: DRUG ABUSER
     Route: 048
  3. TOPIRAMATE OR PLACEBO [Suspect]
     Indication: BIPOLAR DISORDER
     Route: 048
     Dates: end: 20060307
  4. TOPIRAMATE OR PLACEBO [Suspect]
     Indication: DRUG ABUSER
     Route: 048
     Dates: end: 20060307

REACTIONS (2)
  - DEPRESSION [None]
  - SUICIDAL IDEATION [None]
